FAERS Safety Report 21090039 (Version 80)
Quarter: 2025Q1

REPORT INFORMATION
  Report Type: Report from Study
  Country: US (occurrence: US)
  Receive Date: 20220715
  Receipt Date: 20250226
  Transmission Date: 20250409
  Serious: Yes (Hospitalization, Other)
  Sender: TAKEDA
  Company Number: US-TAKEDA-2020TUS059591

PATIENT
  Age: 7 Year
  Sex: Male
  Weight: 32 kg

DRUGS (25)
  1. IDURSULFASE [Suspect]
     Active Substance: IDURSULFASE
     Indication: Mucopolysaccharidosis II
     Dosage: 12 MILLIGRAM, 1/WEEK
     Dates: start: 20200616
  2. IDURSULFASE [Suspect]
     Active Substance: IDURSULFASE
     Indication: Mucopolysaccharidosis I
     Dosage: 18 MILLIGRAM, 1/WEEK
     Dates: start: 20200618
  3. ACETAMINOPHEN [Concomitant]
     Active Substance: ACETAMINOPHEN
  4. EPINEPHRINE [Concomitant]
     Active Substance: EPINEPHRINE
  5. FAMOTIDINE [Concomitant]
     Active Substance: FAMOTIDINE
  6. SODIUM CHLORIDE [Concomitant]
     Active Substance: SODIUM CHLORIDE
  7. VALTOCO [Concomitant]
     Active Substance: DIAZEPAM
  8. HEPARIN [Concomitant]
     Active Substance: HEPARIN SODIUM
  9. SODIUM CHLORIDE [Concomitant]
     Active Substance: SODIUM CHLORIDE
  10. VITAMIN C [Concomitant]
     Active Substance: ASCORBIC ACID
  11. ALBUTEROL SULFATE [Concomitant]
     Active Substance: ALBUTEROL SULFATE
  12. LIDOCAINE [Concomitant]
     Active Substance: LIDOCAINE
  13. FLUTICASONE PROPIONATE [Concomitant]
     Active Substance: FLUTICASONE PROPIONATE
  14. HYDROCORTISONE [Concomitant]
     Active Substance: HYDROCORTISONE
  15. GABAPENTIN [Concomitant]
     Active Substance: GABAPENTIN
  16. Culturelle for Kids [Concomitant]
  17. LEVETIRACETAM [Concomitant]
     Active Substance: LEVETIRACETAM
  18. DIPHENHYDRAMINE HYDROCHLORIDE [Concomitant]
     Active Substance: DIPHENHYDRAMINE HYDROCHLORIDE
  19. CANNABIDIOL\HERBALS [Concomitant]
     Active Substance: CANNABIDIOL\HERBALS
  20. HERBALS [Concomitant]
     Active Substance: HERBALS
  21. LORATADINE [Concomitant]
     Active Substance: LORATADINE
  22. CETIRIZINE HCL [Concomitant]
     Active Substance: CETIRIZINE HYDROCHLORIDE
  23. LACOSAMIDE [Concomitant]
     Active Substance: LACOSAMIDE
  24. DIPHENHYDRAMINE [Concomitant]
     Active Substance: DIPHENHYDRAMINE
  25. CEFDINIR [Concomitant]
     Active Substance: CEFDINIR

REACTIONS (106)
  - Partial seizures [Unknown]
  - Device related sepsis [Unknown]
  - Haematological infection [Unknown]
  - Enterovirus infection [Recovered/Resolved]
  - Post procedural infection [Unknown]
  - COVID-19 [Unknown]
  - Retching [Recovered/Resolved]
  - Toe walking [Not Recovered/Not Resolved]
  - Muscular weakness [Unknown]
  - Tendonitis [Not Recovered/Not Resolved]
  - Rhinovirus infection [Recovered/Resolved]
  - Gastritis viral [Recovered/Resolved]
  - Complex regional pain syndrome [Unknown]
  - Streptococcal infection [Unknown]
  - Viral infection [Recovering/Resolving]
  - Dermatitis contact [Unknown]
  - Bronchiolitis [Unknown]
  - Neuropathy peripheral [Not Recovered/Not Resolved]
  - Otitis media [Recovering/Resolving]
  - Staphylococcal infection [Unknown]
  - Generalised tonic-clonic seizure [Recovered/Resolved]
  - Tympanic membrane perforation [Recovering/Resolving]
  - Adenovirus infection [Recovering/Resolving]
  - Seizure [Recovered/Resolved]
  - Respiratory distress [Unknown]
  - Pyrexia [Not Recovered/Not Resolved]
  - Device alarm issue [Unknown]
  - Needle issue [Unknown]
  - Device occlusion [Unknown]
  - Infusion site bruising [Unknown]
  - Infusion site extravasation [Unknown]
  - Catheter site swelling [Recovered/Resolved]
  - Gait inability [Not Recovered/Not Resolved]
  - Skin abrasion [Unknown]
  - Catheter site warmth [Unknown]
  - Catheter site erythema [Unknown]
  - Poor venous access [Unknown]
  - Malaise [Unknown]
  - Nasopharyngitis [Not Recovered/Not Resolved]
  - Urticaria papular [Unknown]
  - Eye contusion [Unknown]
  - Asthenia [Not Recovered/Not Resolved]
  - Petechiae [Unknown]
  - Nasal pruritus [Unknown]
  - Nasal congestion [Not Recovered/Not Resolved]
  - Musculoskeletal stiffness [Recovering/Resolving]
  - Rhinorrhoea [Unknown]
  - Tympanic membrane perforation [Unknown]
  - Lethargy [Unknown]
  - Pain in extremity [Unknown]
  - Weight increased [Unknown]
  - Peripheral coldness [Not Recovered/Not Resolved]
  - Arthropod bite [Unknown]
  - Tooth loss [Unknown]
  - Decreased appetite [Unknown]
  - Nerve compression [Unknown]
  - Peripheral swelling [Unknown]
  - Agitation [Unknown]
  - Weight bearing difficulty [Not Recovered/Not Resolved]
  - Skin discolouration [Unknown]
  - Abnormal loss of weight [Unknown]
  - Constipation [Unknown]
  - Faeces soft [Unknown]
  - Gastrointestinal viral infection [Recovered/Resolved]
  - Mobility decreased [Not Recovered/Not Resolved]
  - Eyelid skin dryness [Unknown]
  - Inability to crawl [Unknown]
  - Infusion site haemorrhage [Recovered/Resolved]
  - Post procedural complication [Not Recovered/Not Resolved]
  - Middle ear effusion [Unknown]
  - Discomfort [Unknown]
  - Restless legs syndrome [Unknown]
  - Restlessness [Unknown]
  - Limb discomfort [Unknown]
  - Rash macular [Not Recovered/Not Resolved]
  - Erythema infectiosum [Unknown]
  - Muscle injury [Unknown]
  - Dyskinesia [Unknown]
  - Complication associated with device [Unknown]
  - Weight decreased [Unknown]
  - Crying [Unknown]
  - Rash macular [Unknown]
  - Product dose omission issue [Unknown]
  - Inappropriate schedule of product administration [Unknown]
  - Product use in unapproved indication [Unknown]
  - Respiratory tract congestion [Recovered/Resolved]
  - Device malfunction [Unknown]
  - Rhinitis [Recovering/Resolving]
  - Gastroenteritis viral [Unknown]
  - Sluggishness [Unknown]
  - Abdominal distension [Unknown]
  - Catheter site oedema [Unknown]
  - Illness [Unknown]
  - Rhonchi [Unknown]
  - Productive cough [Not Recovered/Not Resolved]
  - Viral upper respiratory tract infection [Not Recovered/Not Resolved]
  - Hypersensitivity [Unknown]
  - Ear infection [Recovered/Resolved]
  - Fatigue [Unknown]
  - Chills [Unknown]
  - Diarrhoea [Not Recovered/Not Resolved]
  - Dyspnoea [Unknown]
  - Vomiting [Unknown]
  - Wheezing [Unknown]
  - Erythema [Unknown]
  - Rash [Not Recovered/Not Resolved]

NARRATIVE: CASE EVENT DATE: 20200618
